FAERS Safety Report 4597503-6 (Version None)
Quarter: 2005Q1

REPORT INFORMATION
  Report Type: 
  Country: None (occurrence: None)
  Receive Date: 20050303
  Receipt Date: 20050225
  Transmission Date: 20050727
  Serious: Yes (Other)
  Sender: FDA-Public Use
  Company Number: BE-ROCHE-396649

PATIENT
  Age: 17 Year
  Sex: Male

DRUGS (1)
  1. ROACCUTANE [Suspect]
     Indication: ACNE
     Route: 048
     Dates: start: 20040615, end: 20050225

REACTIONS (3)
  - EPSTEIN-BARR VIRUS ANTIBODY POSITIVE [None]
  - MONONUCLEOSIS SYNDROME [None]
  - TRANSAMINASES INCREASED [None]
